FAERS Safety Report 4319992-4 (Version None)
Quarter: 2004Q1

REPORT INFORMATION
  Report Type: 
  Country: None (occurrence: None)
  Receive Date: 20040315
  Receipt Date: 20031215
  Transmission Date: 20041129
  Serious: No
  Sender: FDA-Public Use
  Company Number: 2003190654US

PATIENT
  Age: 44 Year
  Sex: Female

DRUGS (1)
  1. BEXTRA [Suspect]
     Indication: NECK PAIN
     Dosage: 10 MG
     Dates: start: 20031001, end: 20031201

REACTIONS (5)
  - ANORECTAL DISORDER [None]
  - BLISTER [None]
  - GLOSSITIS [None]
  - ORAL SOFT TISSUE DISORDER [None]
  - PHARYNGITIS [None]
